FAERS Safety Report 20694330 (Version 2)
Quarter: 2022Q2

REPORT INFORMATION
  Report Type: Report from Study
  Country: BR (occurrence: BR)
  Receive Date: 20220411
  Receipt Date: 20220511
  Transmission Date: 20220721
  Serious: Yes (Death, Hospitalization, Other)
  Sender: FDA-Public Use
  Company Number: BR-ABBVIE-22K-020-4352225-00

PATIENT
  Sex: Female
  Weight: 40 kg

DRUGS (1)
  1. RINVOQ [Suspect]
     Active Substance: UPADACITINIB
     Indication: Rheumatoid arthritis
     Route: 048
     Dates: start: 20210619

REACTIONS (12)
  - Thrombocytopenia [Fatal]
  - Cardiogenic shock [Fatal]
  - Arthralgia [Fatal]
  - Pneumonia [Fatal]
  - COVID-19 [Recovering/Resolving]
  - Asthenia [Recovering/Resolving]
  - Oxygen saturation decreased [Recovering/Resolving]
  - Prosthesis implantation [Unknown]
  - Urinary tract infection [Unknown]
  - Lung disorder [Unknown]
  - Platelet count decreased [Unknown]
  - Pneumonia [Unknown]

NARRATIVE: CASE EVENT DATE: 20220101
